FAERS Safety Report 9753849 (Version 1)
Quarter: 2013Q4

REPORT INFORMATION
  Report Type: Spontaneous
  Country: US (occurrence: None)
  Receive Date: 20131211
  Receipt Date: 20131211
  Transmission Date: 20140711
  Serious: Yes (Other)
  Sender: FDA-Public Use
  Company Number: M-13-065

PATIENT
  Age: 43 Year
  Sex: Female

DRUGS (2)
  1. LEVOTHYROXINE SODIUM [Suspect]
     Indication: HYPOTHYROIDISM
     Dosage: 2 TAB-DAILY (MORNING)
  2. MULTIVITAMINS [Concomitant]

REACTIONS (5)
  - Eye oedema [None]
  - Muscle spasms [None]
  - Impaired work ability [None]
  - Rash erythematous [None]
  - Pruritus [None]
